FAERS Safety Report 17834171 (Version 1)
Quarter: 2020Q2

REPORT INFORMATION
  Report Type: Spontaneous
  Country: US (occurrence: US)
  Receive Date: 20200527
  Receipt Date: 20200527
  Transmission Date: 20200714
  Serious: No
  Sender: FDA-Public Use
  Company Number: None

PATIENT
  Age: 60 Year
  Sex: Male

DRUGS (1)
  1. DUPILUMAB [Suspect]
     Active Substance: DUPILUMAB
     Indication: DERMATITIS ATOPIC
     Route: 058
     Dates: start: 20190130, end: 20191207

REACTIONS (6)
  - Dermatitis atopic [None]
  - Light chain analysis abnormal [None]
  - Antibody test positive [None]
  - Arthralgia [None]
  - Red blood cell sedimentation rate increased [None]
  - Drug ineffective [None]

NARRATIVE: CASE EVENT DATE: 20191207
